FAERS Safety Report 26077083 (Version 3)
Quarter: 2025Q4

REPORT INFORMATION
  Report Type: Spontaneous
  Country: EU (occurrence: EU)
  Receive Date: 20251121
  Receipt Date: 20251211
  Transmission Date: 20260117
  Serious: Yes (Death, Life-Threatening, Other)
  Sender: BRACCO
  Company Number: EU-BRACCO-2025IT07955

PATIENT
  Age: 85 Year
  Sex: Male

DRUGS (2)
  1. IOMERON [Suspect]
     Active Substance: IOMEPROL
     Indication: Angiogram
     Dosage: 60 ML, SINGLE, FLOW RATE OF 5 ML/SEC IN 50 ML SALINE
     Dates: start: 20251110, end: 20251110
  2. SALINE [Suspect]
     Active Substance: SODIUM CHLORIDE
     Dosage: 50 ML

REACTIONS (6)
  - Intestinal ischaemia [Fatal]
  - Loss of consciousness [Fatal]
  - Cardiac arrest [Fatal]
  - Malaise [Fatal]
  - Feeling hot [Fatal]
  - Muscle rigidity [Fatal]

NARRATIVE: CASE EVENT DATE: 20251110
